FAERS Safety Report 5195195-9 (Version None)
Quarter: 2006Q4

REPORT INFORMATION
  Report Type: 
  Country: None (occurrence: None)
  Receive Date: 20061229
  Receipt Date: 20060721
  Transmission Date: 20070319
  Serious: Yes (Hospitalization)
  Sender: FDA-Public Use
  Company Number: JP-PFIZER INC-2006091261

PATIENT
  Sex: Female

DRUGS (1)
  1. SULFASALAZINE [Suspect]
     Indication: COLITIS ULCERATIVE
     Dosage: DAILY DOSE:2GRAM
     Route: 048
     Dates: start: 20060605, end: 20060711

REACTIONS (5)
  - CEREBRAL INFARCTION [None]
  - DERMATITIS EXFOLIATIVE [None]
  - EOSINOPHILIA [None]
  - MENINGITIS ASEPTIC [None]
  - WHITE BLOOD CELL COUNT DECREASED [None]
